FAERS Safety Report 4330805-7 (Version None)
Quarter: 2004Q1

REPORT INFORMATION
  Report Type: 
  Country: None (occurrence: None)
  Receive Date: 20040331
  Receipt Date: 20040319
  Transmission Date: 20041129
  Serious: Yes (Other)
  Sender: FDA-Public Use
  Company Number: 200403574

PATIENT
  Sex: Male
  Weight: 181.4388 kg

DRUGS (1)
  1. IBUPROFEN [Suspect]

REACTIONS (1)
  - DRUG DEPENDENCE [None]
